FAERS Safety Report 4851671-7 (Version None)
Quarter: 2005Q4

REPORT INFORMATION
  Report Type: 
  Country: None (occurrence: None)
  Receive Date: 20051213
  Receipt Date: 20051108
  Transmission Date: 20060501
  Serious: Yes (Death, Other)
  Sender: FDA-Public Use
  Company Number: PHEH2005US12326

PATIENT
  Age: 55 Year
  Sex: Male
  Weight: 68.027 kg

DRUGS (1)
  1. CLOZARIL [Suspect]
     Indication: SCHIZOPHRENIA
     Dosage: 100 MG BID
     Route: 048
     Dates: start: 20000101

REACTIONS (3)
  - DYSPNOEA [None]
  - RENAL CANCER METASTATIC [None]
  - RESPIRATORY FAILURE [None]
